FAERS Safety Report 4917775-5 (Version None)
Quarter: 2006Q1

REPORT INFORMATION
  Report Type: 
  Country: None (occurrence: None)
  Receive Date: 20060221
  Receipt Date: 20060209
  Transmission Date: 20060701
  Serious: Yes (Other)
  Sender: FDA-Public Use
  Company Number: US-SANOFI-SYNTHELABO-A03200600807

PATIENT
  Sex: Female

DRUGS (1)
  1. PLAVIX [Suspect]
     Indication: TRANSIENT ISCHAEMIC ATTACK
     Dosage: UNK
     Route: 048

REACTIONS (4)
  - ABDOMINAL PAIN [None]
  - BLOOD GLUCOSE DECREASED [None]
  - DECREASED APPETITE [None]
  - VOMITING [None]
